FAERS Safety Report 9844424 (Version 1)
Quarter: 2014Q1

REPORT INFORMATION
  Report Type: Spontaneous
  Country: ES (occurrence: None)
  Receive Date: 20140123
  Receipt Date: 20140123
  Transmission Date: 20141002
  Serious: Yes (Hospitalization)
  Sender: FDA-Public Use
  Company Number: ES-ALKEM-000460

PATIENT
  Age: 75 Year
  Sex: Female

DRUGS (2)
  1. METFORMIN (METFORMIN) [Suspect]
     Indication: PRODUCT USED FOR UNKNOWN INDICATION
     Dosage: 1.00000000-G-24.0HOURS
  2. HYDRALAZINE (HYDRALAZINE) [Suspect]
     Indication: PRODUCT USED FOR UNKNOWN INDICATION
     Dosage: 8.0HOURS

REACTIONS (5)
  - Tachycardia [None]
  - Overdose [None]
  - Hypotension [None]
  - Renal failure chronic [None]
  - Renal atrophy [None]
